FAERS Safety Report 4954952-1 (Version None)
Quarter: 2006Q1

REPORT INFORMATION
  Report Type: 
  Country: None (occurrence: None)
  Receive Date: 20060322
  Receipt Date: 20060311
  Transmission Date: 20060701
  Serious: Yes (Other)
  Sender: FDA-Public Use
  Company Number: 2006034505

PATIENT
  Age: 24 Year
  Sex: Male
  Weight: 72.5755 kg

DRUGS (2)
  1. UNISOM [Suspect]
     Indication: INTENTIONAL OVERDOSE
     Dosage: 17 SLEEPGELS ONCE, ORAL
     Route: 048
     Dates: start: 20060311, end: 20060311
  2. BUPROPION HYDROCHLORIDE [Concomitant]

REACTIONS (2)
  - INTENTIONAL OVERDOSE [None]
  - SOMNOLENCE [None]
